FAERS Safety Report 17814371 (Version 2)
Quarter: 2020Q2

REPORT INFORMATION
  Report Type: Spontaneous
  Country: CY (occurrence: CY)
  Receive Date: 20200521
  Receipt Date: 20200528
  Transmission Date: 20200714
  Serious: Yes (Other)
  Sender: FDA-Public Use
  Company Number: CY-B.I. PHARMACEUTICALS,INC./RIDGEFIELD-2020-BI-024709

PATIENT
  Age: 83 Year
  Sex: Male

DRUGS (2)
  1. FLUTICASONE + SALMETEROL [Concomitant]
     Active Substance: FLUTICASONE FUROATE\SALMETEROL XINAFOATE
     Indication: PRODUCT USED FOR UNKNOWN INDICATION
     Dosage: DOSE: 500+50 MICROGRAM
     Route: 065
  2. SPIRIVA [Suspect]
     Active Substance: TIOTROPIUM BROMIDE MONOHYDRATE
     Indication: PRODUCT USED FOR UNKNOWN INDICATION
     Route: 065

REACTIONS (4)
  - Cough [Unknown]
  - Eosinophilia [Recovered/Resolved]
  - Constipation [Recovered/Resolved]
  - Bronchopulmonary aspergillosis allergic [Unknown]
